FAERS Safety Report 12439895 (Version 1)
Quarter: 2016Q2

REPORT INFORMATION
  Report Type: Report from Study
  Country: BR (occurrence: BR)
  Receive Date: 20160606
  Receipt Date: 20160606
  Transmission Date: 20160815
  Serious: Yes (Other)
  Sender: FDA-Public Use
  Company Number: PHHY2016BR077347

PATIENT
  Age: 56 Year
  Sex: Male
  Weight: 86 kg

DRUGS (2)
  1. SANDOSTATIN LAR DEPOT [Suspect]
     Active Substance: OCTREOTIDE ACETATE
     Indication: GASTROINTESTINAL NEOPLASM
     Dosage: 20 MG, QMO
     Route: 030
     Dates: start: 201502
  2. SANDOSTATIN LAR DEPOT [Suspect]
     Active Substance: OCTREOTIDE ACETATE
     Dosage: 30 MG, QMO
     Route: 030
     Dates: start: 201604

REACTIONS (4)
  - Malignant neoplasm progression [Unknown]
  - Hepatic cancer metastatic [Unknown]
  - Product use issue [Unknown]
  - Injection site pain [Unknown]

NARRATIVE: CASE EVENT DATE: 201502
